FAERS Safety Report 4462613-0 (Version None)
Quarter: 2004Q3

REPORT INFORMATION
  Report Type: 
  Country: None (occurrence: None)
  Receive Date: 20040928
  Receipt Date: 20040917
  Transmission Date: 20050211
  Serious: Yes (Hospitalization)
  Sender: FDA-Public Use
  Company Number: 200412698GDS

PATIENT
  Age: 71 Year
  Sex: Female

DRUGS (9)
  1. CIPROFLOXACIN [Suspect]
     Indication: URINARY TRACT INFECTION
     Dosage: 500 MG, BID, ORAL
     Route: 048
     Dates: start: 20040809, end: 20040812
  2. PROPRANOLOL [Suspect]
     Dosage: 20 MG, BID, ORAL
     Route: 048
     Dates: start: 20040804, end: 20040810
  3. TIZANIDINE HCL [Suspect]
     Dosage: 4 MG, TOTAL DAILY, ORAL
     Route: 048
     Dates: end: 20040810
  4. ASPIRIN [Concomitant]
  5. IRBESARTAN [Concomitant]
  6. SIMVASTATIN [Concomitant]
  7. OXAZEPAM [Concomitant]
  8. DEXTRAN SULFATE [Concomitant]
  9. TRAMADOL HCL [Concomitant]

REACTIONS (5)
  - BLOOD CREATININE INCREASED [None]
  - BRADYCARDIA [None]
  - ELECTROCARDIOGRAM QT PROLONGED [None]
  - HYPOTENSION [None]
  - SINUS ARREST [None]
